FAERS Safety Report 9286254 (Version 1)
Quarter: 2013Q2

REPORT INFORMATION
  Report Type: Spontaneous
  Country: RO (occurrence: RO)
  Receive Date: 20130513
  Receipt Date: 20130513
  Transmission Date: 20140414
  Serious: Yes (Hospitalization)
  Sender: FDA-Public Use
  Company Number: RO-VIIV HEALTHCARE LIMITED-B0890883A

PATIENT
  Age: 16 Year
  Sex: Female

DRUGS (8)
  1. TRIZIVIR [Suspect]
     Indication: HIV INFECTION
     Route: 065
  2. ISONIAZID [Concomitant]
     Indication: TUBERCULOSIS
     Route: 065
  3. PYRAZINAMIDE [Concomitant]
     Indication: TUBERCULOSIS
     Route: 065
  4. RIFAMPICIN [Concomitant]
     Indication: TUBERCULOSIS
     Route: 065
  5. ETHAMBUTOL [Concomitant]
     Indication: TUBERCULOSIS
     Route: 065
  6. FLUCONAZOLE [Concomitant]
     Indication: PROPHYLAXIS
     Route: 065
  7. CLARITHROMYCIN [Concomitant]
     Indication: PROPHYLAXIS
     Route: 065
  8. CO-TRIMOXAZOLE [Concomitant]
     Indication: PROPHYLAXIS
     Route: 065

REACTIONS (10)
  - Immune reconstitution inflammatory syndrome [Recovering/Resolving]
  - Tuberculoma of central nervous system [Recovering/Resolving]
  - Grand mal convulsion [Unknown]
  - Lymphadenopathy [Unknown]
  - Somnolence [Unknown]
  - Pyrexia [Unknown]
  - Agitation [Unknown]
  - Confusional state [Unknown]
  - Vomiting [Unknown]
  - CD4 lymphocytes [Unknown]
